FAERS Safety Report 4804165-9 (Version None)
Quarter: 2005Q4

REPORT INFORMATION
  Report Type: 
  Country: None (occurrence: None)
  Receive Date: 20051014
  Receipt Date: 20051003
  Transmission Date: 20060501
  Serious: Yes (Disabling)
  Sender: FDA-Public Use
  Company Number: 218290

PATIENT
  Age: 52 Year
  Sex: Female
  Weight: 75.3 kg

DRUGS (4)
  1. AVASTIN (BEVACIZUMAB) PWDR + SOLVENT, INFUSION SOLN, 100MG [Suspect]
     Indication: COLORECTAL CANCER METASTATIC
     Dosage: 5 MG/KG, Q2W, INTRAVENOUS
     Route: 042
  2. FLUOROURACIL [Concomitant]
  3. LEUCOVORIN CALCIUM [Concomitant]
  4. OXALIPLATIN (OXALIPLATIN) [Concomitant]

REACTIONS (4)
  - DIAPHRAGMATIC PARALYSIS [None]
  - DYSPHAGIA [None]
  - MUCOSAL INFLAMMATION [None]
  - VOCAL CORD PARALYSIS [None]
